FAERS Safety Report 12305005 (Version 1)
Quarter: 2016Q2

REPORT INFORMATION
  Report Type: Spontaneous
  Country: US (occurrence: US)
  Receive Date: 20160426
  Receipt Date: 20160426
  Transmission Date: 20160815
  Serious: Yes (Other)
  Sender: FDA-Public Use
  Company Number: US-OCTA-GAM11216US

PATIENT
  Age: 80 Year
  Sex: Male
  Weight: 91 kg

DRUGS (1)
  1. OCTAGAM IMMUNE GLOBULIN (HUMAN) [Suspect]
     Active Substance: HUMAN IMMUNOGLOBULIN G
     Indication: HYPOGAMMAGLOBULINAEMIA
     Dosage: SINCE 07-FEB-2014 ONGOING EVERY 4 WEEKS
     Route: 042
     Dates: start: 20160407, end: 20160407

REACTIONS (6)
  - Erythema [Unknown]
  - Speech disorder [Unknown]
  - Urticaria [Unknown]
  - Dyspnoea [Unknown]
  - Chest discomfort [Unknown]
  - Swollen tongue [Unknown]

NARRATIVE: CASE EVENT DATE: 20160407
